FAERS Safety Report 8290015-8 (Version None)
Quarter: 2012Q2

REPORT INFORMATION
  Report Type: 
  Country: None (occurrence: None)
  Receive Date: 20120417
  Receipt Date: 20120414
  Transmission Date: 20120825
  Serious: Yes (Life-Threatening, Hospitalization)
  Sender: FDA-Public Use
  Company Number: LB-B.I. PHARMACEUTICALS,INC./RIDGEFIELD-2012-CS-00339AE

PATIENT
  Age: 76 Year
  Sex: Female

DRUGS (9)
  1. PARIET 20 [Concomitant]
     Indication: PROPHYLAXIS
     Dosage: ONCE DAILY
     Route: 048
  2. LIPONORM 20 [Concomitant]
     Indication: DIABETES MELLITUS
     Dosage: ONCE DAILY
     Route: 048
  3. JANUVIA [Concomitant]
     Indication: DIABETES MELLITUS
     Dosage: ONCE DAILY
     Route: 048
  4. DIAMICRON 100 [Concomitant]
     Indication: DIABETES MELLITUS
     Dosage: ONCE DAILY
     Route: 048
  5. LIPONORM 20 [Concomitant]
     Indication: DYSLIPIDAEMIA
  6. CORDARONE [Concomitant]
     Indication: ATRIAL FIBRILLATION
     Dosage: ONCE DAILY
     Route: 048
  7. PRADAXA [Suspect]
     Indication: CEREBROVASCULAR ACCIDENT PROPHYLAXIS
     Dosage: 150 MG
     Route: 048
     Dates: start: 20110316, end: 20120316
  8. COAPPROVEL 300/12.5 [Concomitant]
     Indication: HYPERTENSION
     Dosage: ONCE DAILY
     Route: 048
  9. ACTONEL [Concomitant]
     Indication: OSTEOPOROSIS
     Dosage: ONCE WEEKLY
     Route: 048

REACTIONS (5)
  - GENERAL PHYSICAL HEALTH DETERIORATION [None]
  - COAGULATION FACTOR V LEVEL DECREASED [None]
  - RENAL IMPAIRMENT [None]
  - DYSPNOEA [None]
  - VIRAL INFECTION [None]
